FAERS Safety Report 15566664 (Version 1)
Quarter: 2018Q4

REPORT INFORMATION
  Report Type: Spontaneous
  Country: FR (occurrence: FR)
  Receive Date: 20181030
  Receipt Date: 20181030
  Transmission Date: 20190205
  Serious: Yes (Hospitalization)
  Sender: FDA-Public Use
  Company Number: FR-TEVA-2018-FR-969556

PATIENT
  Age: 73 Year
  Sex: Male
  Weight: 90 kg

DRUGS (7)
  1. METFORMINE [Suspect]
     Active Substance: METFORMIN HYDROCHLORIDE
     Indication: TYPE 2 DIABETES MELLITUS
     Dosage: 1000 MILLIGRAM DAILY;
     Route: 048
     Dates: end: 201708
  2. PERINDOPRIL ARGININE [Suspect]
     Active Substance: PERINDOPRIL ARGININE
     Indication: HYPERTENSION
     Dosage: 5 MG THEN 2.5 MG
     Route: 048
     Dates: end: 20170831
  3. SPECIAFOLDINE [Concomitant]
     Active Substance: FOLIC ACID
  4. XARELTO [Concomitant]
     Active Substance: RIVAROXABAN
  5. EZETIMIBE. [Concomitant]
     Active Substance: EZETIMIBE
     Dosage: EZETIMIBE/SIMVASTATINE
  6. AMIODARONE [Concomitant]
     Active Substance: AMIODARONE
  7. SILODOSINE [Suspect]
     Active Substance: SILODOSIN
     Route: 065

REACTIONS (2)
  - Acute kidney injury [Recovered/Resolved]
  - Confusional state [Recovered/Resolved]

NARRATIVE: CASE EVENT DATE: 20170802
